FAERS Safety Report 6903664-3 (Version None)
Quarter: 2010Q3

REPORT INFORMATION
  Report Type: 
  Country: None (occurrence: None)
  Receive Date: 20100803
  Receipt Date: 20081117
  Transmission Date: 20110219
  Serious: No
  Sender: FDA-Public Use
  Company Number: US-PFIZER INC-2008097787

PATIENT
  Sex: Male
  Weight: 90.9 kg

DRUGS (5)
  1. LYRICA [Suspect]
     Indication: NEUROPATHY PERIPHERAL
  2. TYLENOL [Concomitant]
  3. DRUG, UNSPECIFIED [Concomitant]
  4. ATENOLOL [Concomitant]
  5. TRIAMTERENE [Concomitant]

REACTIONS (3)
  - BALANCE DISORDER [None]
  - FEELING ABNORMAL [None]
  - PAIN [None]
